FAERS Safety Report 9496807 (Version 1)
Quarter: 2013Q3

REPORT INFORMATION
  Report Type: Spontaneous
  Country: CN (occurrence: CN)
  Receive Date: 20130904
  Receipt Date: 20130904
  Transmission Date: 20140515
  Serious: Yes (Other)
  Sender: FDA-Public Use
  Company Number: CN-PFIZER INC-2013250287

PATIENT
  Age: 77 Year
  Sex: Male
  Weight: 50 kg

DRUGS (1)
  1. SOLU-MEDROL [Suspect]
     Indication: CHRONIC OBSTRUCTIVE PULMONARY DISEASE
     Dosage: 500 MG, 1X/DAY
     Route: 041
     Dates: start: 20120303, end: 20120305

REACTIONS (3)
  - Gastrointestinal haemorrhage [Recovered/Resolved]
  - Faeces discoloured [Recovered/Resolved]
  - Abdominal pain [Recovered/Resolved]
